FAERS Safety Report 16299096 (Version 2)
Quarter: 2019Q2

REPORT INFORMATION
  Report Type: Spontaneous
  Country: CH (occurrence: CH)
  Receive Date: 20190510
  Receipt Date: 20190528
  Transmission Date: 20190711
  Serious: Yes (Other)
  Sender: FDA-Public Use
  Company Number: CH-009507513-1905CHE000468

PATIENT
  Age: 70 Year
  Sex: Female

DRUGS (23)
  1. TIENAM [Suspect]
     Active Substance: CILASTATIN SODIUM\IMIPENEM
     Dosage: 0.5 GRAM, Q3D
     Route: 042
     Dates: start: 20150708, end: 20150717
  2. PREDNISONE. [Concomitant]
     Active Substance: PREDNISONE
  3. DAPTOMYCIN. [Concomitant]
     Active Substance: DAPTOMYCIN
  4. DARAPRIM [Concomitant]
     Active Substance: PYRIMETHAMINE
  5. VFEND [Concomitant]
     Active Substance: VORICONAZOLE
  6. TORSEMIDE. [Concomitant]
     Active Substance: TORSEMIDE
  7. ETOPOSIDE. [Concomitant]
     Active Substance: ETOPOSIDE
     Dates: end: 201506
  8. PIPERACILLIN AND TAZOBACTAM [Concomitant]
     Active Substance: PIPERACILLIN SODIUM\TAZOBACTAM SODIUM
     Dosage: 2.25 GRAM, IN TOTAL
     Route: 042
     Dates: start: 20150624, end: 20150624
  9. PIPERACILLIN AND TAZOBACTAM [Concomitant]
     Active Substance: PIPERACILLIN SODIUM\TAZOBACTAM SODIUM
     Dosage: 13.5 GRAM
     Route: 042
     Dates: start: 20150625, end: 20150626
  10. PIPERACILLIN AND TAZOBACTAM [Concomitant]
     Active Substance: PIPERACILLIN SODIUM\TAZOBACTAM SODIUM
     Dosage: 4.5 GRAM
     Dates: start: 20150626, end: 20150708
  11. VANCOMYCIN [Concomitant]
     Active Substance: VANCOMYCIN
     Dosage: 1 GRAM, QOD
     Dates: start: 20150624, end: 20150626
  12. CALCIUM GLUBIONATE [Concomitant]
     Active Substance: CALCIUM GLUBIONATE
  13. CALCIMAGON D3 [Concomitant]
     Active Substance: CALCIUM\CHOLECALCIFEROL
  14. HYDROCORTISONE. [Concomitant]
     Active Substance: HYDROCORTISONE
     Dates: start: 20150624, end: 20150706
  15. MAGNESIUM ASPARTATE [Concomitant]
     Active Substance: MAGNESIUM ASPARTATE
  16. VALTREX [Concomitant]
     Active Substance: VALACYCLOVIR HYDROCHLORIDE
  17. CLINDAMYCIN. [Concomitant]
     Active Substance: CLINDAMYCIN
  18. FOLIC ACID. [Concomitant]
     Active Substance: FOLIC ACID
  19. DISTRANEURIN [Concomitant]
     Active Substance: CLOMETHIAZOLE
  20. POTASSIUM CHLORIDE. [Concomitant]
     Active Substance: POTASSIUM CHLORIDE
  21. ZOLPIDEM [Concomitant]
     Active Substance: ZOLPIDEM\ZOLPIDEM TARTRATE
  22. MEROPENEM. [Concomitant]
     Active Substance: MEROPENEM
     Dosage: 1 GRAM, Q3D
     Dates: start: 20150717
  23. SANDIMMUN [Concomitant]
     Active Substance: CYCLOSPORINE

REACTIONS (2)
  - Epilepsy [Recovered/Resolved]
  - Confusional state [Recovered/Resolved]

NARRATIVE: CASE EVENT DATE: 20150716
